FAERS Safety Report 25663820 (Version 1)
Quarter: 2025Q3

REPORT INFORMATION
  Report Type: Spontaneous
  Country: CA (occurrence: CA)
  Receive Date: 20250811
  Receipt Date: 20250811
  Transmission Date: 20251021
  Serious: Yes (Hospitalization)
  Sender: ROCHE
  Company Number: CA-002147023-NVSC2025CA120092

PATIENT
  Age: 70 Year
  Sex: Male
  Weight: 94 kg

DRUGS (7)
  1. OMALIZUMAB [Suspect]
     Active Substance: OMALIZUMAB
     Indication: Product used for unknown indication
     Dosage: 225 MG, Q2W
     Route: 065
  2. CICLESONIDE [Suspect]
     Active Substance: CICLESONIDE
     Indication: Product used for unknown indication
     Dosage: 400 UG, BID
     Route: 065
  3. NUCALA [Suspect]
     Active Substance: MEPOLIZUMAB
     Indication: Asthma
     Dosage: 100 MG, QW (NOT OTHERWISE SPECIFIED)
     Route: 042
  4. ALBUTEROL SULFATE [Suspect]
     Active Substance: ALBUTEROL SULFATE
     Indication: Product used for unknown indication
     Route: 065
  5. SINGULAIR [Suspect]
     Active Substance: MONTELUKAST SODIUM
     Indication: Product used for unknown indication
     Route: 065
  6. TIOTROPIUM BROMIDE MONOHYDRATE [Suspect]
     Active Substance: TIOTROPIUM BROMIDE MONOHYDRATE
     Indication: Product used for unknown indication
     Dosage: 5 UG, QD
     Route: 065
  7. ZENHALE [Suspect]
     Active Substance: FORMOTEROL FUMARATE\MOMETASONE FUROATE
     Indication: Product used for unknown indication
     Dosage: 400 UG, BID (AEROSOL, METERED DOSE)
     Route: 065

REACTIONS (21)
  - Asthma [Unknown]
  - Blood immunoglobulin E increased [Unknown]
  - Cough [Unknown]
  - Dyspnoea [Unknown]
  - Dyspnoea exertional [Unknown]
  - Eosinophil count increased [Unknown]
  - Fall [Unknown]
  - Fatigue [Unknown]
  - Gastrooesophageal reflux disease [Unknown]
  - Wheezing [Unknown]
  - Heart rate [Unknown]
  - Mitral valve disease [Unknown]
  - Nasopharyngitis [Unknown]
  - Obstructive airways disorder [Unknown]
  - Pain [Unknown]
  - Pneumonia streptococcal [Unknown]
  - Renal impairment [Unknown]
  - Rib fracture [Unknown]
  - Sinusitis [Unknown]
  - Viral infection [Unknown]
  - Vulval disorder [Unknown]
